FAERS Safety Report 17946182 (Version 10)
Quarter: 2021Q1

REPORT INFORMATION
  Report Type: Spontaneous
  Country: FR (occurrence: FR)
  Receive Date: 20200625
  Receipt Date: 20210120
  Transmission Date: 20210419
  Serious: Yes (Life-Threatening, Hospitalization, Other)
  Sender: FDA-Public Use
  Company Number: NVSC2020FR177729

PATIENT
  Age: 52 Year
  Sex: Female

DRUGS (8)
  1. RITUXIMAB. [Suspect]
     Active Substance: RITUXIMAB
     Indication: GRANULOMATOSIS WITH POLYANGIITIS
     Dosage: 375 MG/M2 WEEKLY FOR 4 WEEKS
     Route: 051
     Dates: start: 201910
  2. HYDROXYCHLOROQUINE SULFATE. [Suspect]
     Active Substance: HYDROXYCHLOROQUINE SULFATE
     Indication: COVID-19
     Dosage: 200 MG, Q8H
     Route: 065
     Dates: start: 2020, end: 2020
  3. LOPINAVIR/RITONAVIR [Suspect]
     Active Substance: LOPINAVIR\RITONAVIR
     Indication: COVID-19 PNEUMONIA
     Dosage: UNK
     Route: 065
  4. HYDROXYCHLOROQUINE SULFATE. [Suspect]
     Active Substance: HYDROXYCHLOROQUINE SULFATE
     Dosage: 200 MG/8 HOUR FOR 10 DAYS FROM DAY #19
     Route: 065
     Dates: start: 20200325
  5. PREDNISONE. [Suspect]
     Active Substance: PREDNISONE
     Indication: IMMUNOSUPPRESSANT DRUG THERAPY
  6. NEBIVOLOL. [Concomitant]
     Active Substance: NEBIVOLOL
     Indication: HYPERTENSION
     Dosage: UNK
     Route: 065
  7. RITUXIMAB. [Suspect]
     Active Substance: RITUXIMAB
     Indication: IMMUNOSUPPRESSANT DRUG THERAPY
     Dosage: 500 MG (MAINTENANCE THERAPY), SINGLE DOSE
     Route: 065
     Dates: start: 20200305
  8. PREDNISONE. [Suspect]
     Active Substance: PREDNISONE
     Indication: GRANULOMATOSIS WITH POLYANGIITIS
     Dosage: 15 MG, QD
     Route: 065

REACTIONS (14)
  - Pyrexia [Recovering/Resolving]
  - Therapeutic response unexpected [Unknown]
  - COVID-19 pneumonia [Recovered/Resolved]
  - Coronavirus infection [Recovered/Resolved]
  - Headache [Recovering/Resolving]
  - Myalgia [Recovering/Resolving]
  - Intentional product misuse [Unknown]
  - Cough [Recovering/Resolving]
  - Acute respiratory distress syndrome [Recovering/Resolving]
  - COVID-19 [Recovered/Resolved]
  - Off label use [Unknown]
  - Respiratory failure [Recovered/Resolved]
  - Lung opacity [Recovering/Resolving]
  - Interstitial lung disease [Recovering/Resolving]

NARRATIVE: CASE EVENT DATE: 202003
